FAERS Safety Report 8989364 (Version 2)
Quarter: 2013Q1

REPORT INFORMATION
  Report Type: Spontaneous
  Country: US (occurrence: US)
  Receive Date: 20121228
  Receipt Date: 20130124
  Transmission Date: 20140127
  Serious: Yes (Hospitalization)
  Sender: FDA-Public Use
  Company Number: US-BAYER-2012-135544

PATIENT
  Age: 50 Year
  Sex: Female

DRUGS (14)
  1. YASMIN [Suspect]
     Dosage: UNK
     Dates: start: 2002, end: 201104
  2. OCELLA [Suspect]
     Dosage: UNK
     Dates: start: 2008, end: 201104
  3. GIANVI [Suspect]
     Dosage: UNK
     Dates: start: 2010, end: 201104
  4. NEXIUM [Concomitant]
     Dosage: 40 MG, DAILY
     Route: 048
  5. SYNTHROID [Concomitant]
     Dosage: 25 MCG DAILY/ 150 MCG
     Route: 048
  6. BYSTOLIC [Concomitant]
     Dosage: 5 MG, DAILY
  7. TELMISARTAN/HCTZ [Concomitant]
     Dosage: 80/12.5 MG 1 TAB DAILY
     Route: 048
  8. BENZONATATE [Concomitant]
     Dosage: 100 MG, UNK
  9. ALBUTEROL [Concomitant]
     Dosage: 4 MG, UNK
  10. KENALOG [Concomitant]
     Dosage: 60 MG, UNK
     Route: 030
     Dates: start: 20110120
  11. LISINOPRIL [Concomitant]
     Dosage: UNK
     Dates: end: 20110120
  12. DOXYCYCLINE [Concomitant]
     Dosage: 100 MG, BID
  13. TUSSINEX [Concomitant]
     Dosage: 6 G 1-2 TSP EVERY 12 HOURS
  14. YAZ [Suspect]

REACTIONS (1)
  - Pulmonary embolism [None]
